FAERS Safety Report 17656935 (Version 1)
Quarter: 2020Q2

REPORT INFORMATION
  Report Type: Spontaneous
  Country: DE (occurrence: DE)
  Receive Date: 20200410
  Receipt Date: 20200410
  Transmission Date: 20200713
  Serious: Yes (Other)
  Sender: FDA-Public Use
  Company Number: DE-GILEAD-2020-0458467

PATIENT
  Sex: Male
  Weight: 68 kg

DRUGS (1)
  1. GENVOYA [Suspect]
     Active Substance: COBICISTAT\ELVITEGRAVIR\EMTRICITABINE\TENOFOVIR ALAFENAMIDE FUMARATE
     Indication: PRODUCT USED FOR UNKNOWN INDICATION
     Dosage: 1 DOSAGE FORM, QD
     Route: 065
     Dates: start: 20160409

REACTIONS (4)
  - HIV infection [Not Recovered/Not Resolved]
  - Pruritus [Unknown]
  - Photosensitivity reaction [Not Recovered/Not Resolved]
  - Burns second degree [Unknown]

NARRATIVE: CASE EVENT DATE: 2017
